FAERS Safety Report 4777174-6 (Version None)
Quarter: 2005Q3

REPORT INFORMATION
  Report Type: 
  Country: None (occurrence: None)
  Receive Date: 20050923
  Receipt Date: 20050913
  Transmission Date: 20060218
  Serious: Yes (Other)
  Sender: FDA-Public Use
  Company Number: US-ROCHE-417552

PATIENT
  Age: 55 Year
  Sex: Female

DRUGS (2)
  1. CAPECITABINE [Suspect]
     Dosage: DAYS 1-14 Q 21 DAYS
     Route: 048
     Dates: start: 20050615
  2. LAPATINIB [Suspect]
     Route: 048
     Dates: start: 20050615

REACTIONS (1)
  - EJECTION FRACTION DECREASED [None]
